FAERS Safety Report 10025822 (Version 2)
Quarter: 2014Q1

REPORT INFORMATION
  Report Type: Spontaneous
  Country: US (occurrence: US)
  Receive Date: 20140320
  Receipt Date: 20140320
  Transmission Date: 20141002
  Serious: Yes (Hospitalization)
  Sender: FDA-Public Use
  Company Number: US-DENDREON CORPORATION-2014PROUSA03576

PATIENT
  Age: 78 Year
  Sex: Male
  Weight: 73.92 kg

DRUGS (5)
  1. PROVENGE [Suspect]
     Indication: PROSTATE CANCER METASTATIC
     Dosage: 250 ML, SINGLE
     Route: 042
     Dates: start: 20140214, end: 20140214
  2. PROVENGE [Suspect]
     Dosage: 250 ML, SINGLE
     Route: 042
     Dates: start: 20140228, end: 20140228
  3. FOSAMAX PLUS D [Concomitant]
     Indication: PRODUCT USED FOR UNKNOWN INDICATION
     Dosage: 1 TABLETS, WEEKLY
     Route: 048
  4. LUPRON [Concomitant]
     Indication: PROSTATIC SPECIFIC ANTIGEN INCREASED
     Dosage: 1 DF, EVERY 4 MONTHS
  5. ENZALUTAMIDE [Concomitant]
     Indication: PROSTATIC SPECIFIC ANTIGEN INCREASED
     Dosage: 160 MG, QD
     Route: 048

REACTIONS (2)
  - Thrombosis [Not Recovered/Not Resolved]
  - Catheter site pain [Unknown]
